FAERS Safety Report 11052335 (Version 3)
Quarter: 2016Q4

REPORT INFORMATION
  Report Type: Report from Study
  Country: NI (occurrence: NI)
  Receive Date: 20150421
  Receipt Date: 20161226
  Transmission Date: 20170206
  Serious: Yes (Hospitalization)
  Sender: FDA-Public Use
  Company Number: PHHY2015NI046344

PATIENT
  Sex: Female

DRUGS (3)
  1. BLINATUMOMAB [Concomitant]
     Active Substance: BLINATUMOMAB
     Indication: PRODUCT USED FOR UNKNOWN INDICATION
     Route: 065
  2. DASATINIB [Concomitant]
     Active Substance: DASATINIB
     Indication: PRODUCT USED FOR UNKNOWN INDICATION
     Route: 065
  3. GLIVEC [Suspect]
     Active Substance: IMATINIB MESYLATE
     Indication: CHRONIC MYELOID LEUKAEMIA
     Dosage: 200 MG, UNK
     Route: 065

REACTIONS (6)
  - Brain neoplasm malignant [Unknown]
  - Blast cell count increased [Unknown]
  - Therapy non-responder [Unknown]
  - Recurrent cancer [Unknown]
  - Second primary malignancy [Unknown]
  - Drug resistance [Unknown]
